FAERS Safety Report 5596677-8 (Version None)
Quarter: 2008Q1

REPORT INFORMATION
  Report Type: 
  Country: None (occurrence: None)
  Receive Date: 20080118
  Receipt Date: 20080109
  Transmission Date: 20080703
  Serious: Yes (Death)
  Sender: FDA-Public Use
  Company Number: US-PFIZER INC-2008002894

PATIENT
  Age: 58 Year
  Sex: Female

DRUGS (7)
  1. METHADONE HCL [Suspect]
  2. MUSCLE RELAXANTS [Suspect]
  3. METOPROLOL TARTRATE [Suspect]
  4. ALPRAZOLAM [Suspect]
  5. HYDROCODONE BITARTRATE + ACETAMINOPHEN [Suspect]
  6. ACETAMINOPHEN/DIPHENHYDRAMINE [Suspect]
  7. ETHANOL [Concomitant]

REACTIONS (1)
  - INTENTIONAL DRUG MISUSE [None]
